FAERS Safety Report 10784831 (Version 1)
Quarter: 2015Q1

REPORT INFORMATION
  Report Type: Spontaneous
  Country: US (occurrence: None)
  Receive Date: 20150209
  Receipt Date: 20150209
  Transmission Date: 20150721
  Serious: Yes (Death)
  Sender: FDA-Public Use
  Company Number: 2015COR00022

PATIENT
  Age: 30 Year
  Sex: Male

DRUGS (6)
  1. SILDENAFIL. [Concomitant]
     Active Substance: SILDENAFIL
  2. HUMAN GROWTH HORMONE [Concomitant]
  3. ALPRAZOLAM. [Suspect]
     Active Substance: ALPRAZOLAM
  4. HEROIN [Suspect]
     Active Substance: DIACETYLMORPHINE
  5. ETHANOL [Suspect]
     Active Substance: ALCOHOL
  6. NAPROXEN. [Concomitant]
     Active Substance: NAPROXEN

REACTIONS (3)
  - Accident [None]
  - Toxicity to various agents [None]
  - Drug abuse [None]
